FAERS Safety Report 24377816 (Version 4)
Quarter: 2024Q4

REPORT INFORMATION
  Report Type: Report from Study
  Country: CA (occurrence: CA)
  Receive Date: 20240930
  Receipt Date: 20241226
  Transmission Date: 20250115
  Serious: Yes (Hospitalization, Other)
  Sender: GLAXOSMITHKLINE
  Company Number: CA-GLAXOSMITHKLINE-CA2024043434

PATIENT

DRUGS (10)
  1. MEPOLIZUMAB [Suspect]
     Active Substance: MEPOLIZUMAB
     Indication: Asthma
     Dosage: 100 MG, Q4W
     Route: 058
     Dates: start: 20180710
  2. MEPOLIZUMAB [Suspect]
     Active Substance: MEPOLIZUMAB
     Indication: Asthma
     Dosage: 100 MG, Q4W
     Route: 058
  3. MEPOLIZUMAB [Suspect]
     Active Substance: MEPOLIZUMAB
     Indication: Asthma
     Dosage: 100 MG, Q4W
     Route: 058
  4. MEPOLIZUMAB [Suspect]
     Active Substance: MEPOLIZUMAB
     Indication: Asthma
     Dosage: 100 MG, Q4W
     Route: 058
  5. INCRUSE ELLIPTA [Concomitant]
     Active Substance: UMECLIDINIUM BROMIDE
     Indication: Product used for unknown indication
     Dosage: 1 PUFF(S), QD,1 1/2 MTHS)
  6. SYMBICORT [Concomitant]
     Active Substance: BUDESONIDE\FORMOTEROL FUMARATE DIHYDRATE
     Indication: Product used for unknown indication
     Dosage: 2 PUFF(S), BID,APPRX 13 YRS)
  7. VENTOLIN [Concomitant]
     Active Substance: ALBUTEROL SULFATE
     Indication: Product used for unknown indication
     Dosage: UNK,PUFFER PRN (APPRX 40 YRS) NEBS (SINCE 1982)
  8. VENTOLIN [Concomitant]
     Active Substance: ALBUTEROL SULFATE
     Dosage: UNK, NEBS PRN
     Dates: start: 1982
  9. ATROVENT [Concomitant]
     Active Substance: IPRATROPIUM BROMIDE
     Indication: Product used for unknown indication
     Dosage: UNK,NEBS PRN (SINCE 1982)
     Dates: start: 1982
  10. PREDNISONE [Concomitant]
     Active Substance: PREDNISONE
     Indication: Asthma
     Dosage: 50 MG,PO TO TAPERING
     Route: 048
     Dates: start: 20180520, end: 20180623

REACTIONS (14)
  - Near death experience [Unknown]
  - Respiratory arrest [Unknown]
  - Fall [Unknown]
  - Asthma [Unknown]
  - Head injury [Unknown]
  - Nasopharyngitis [Unknown]
  - Sinus congestion [Unknown]
  - Nasal discomfort [Unknown]
  - Back pain [Unknown]
  - Weight increased [Unknown]
  - Stress [Unknown]
  - Rhinorrhoea [Not Recovered/Not Resolved]
  - Headache [Not Recovered/Not Resolved]
  - Cough [Unknown]

NARRATIVE: CASE EVENT DATE: 20240501
